FAERS Safety Report 9206570 (Version 2)
Quarter: 2013Q4

REPORT INFORMATION
  Report Type: Spontaneous
  Country: US (occurrence: US)
  Receive Date: 20130403
  Receipt Date: 20131216
  Transmission Date: 20140711
  Serious: Yes (Other)
  Sender: FDA-Public Use
  Company Number: US-BAYER-2013-040211

PATIENT
  Age: 25 Year
  Sex: Female

DRUGS (6)
  1. YASMIN [Suspect]
     Dosage: UNK
     Route: 048
     Dates: start: 200701, end: 201002
  2. YAZ [Suspect]
     Dosage: UNK
     Route: 048
     Dates: start: 200701, end: 201002
  3. SPIRONOLACTONE [Concomitant]
     Dosage: 25 MG, UNK
     Route: 048
     Dates: start: 20070601
  4. PHENTERMINE [Concomitant]
     Dosage: 37.5 MG, UNK
     Route: 048
     Dates: start: 20070607
  5. EFFEXOR [Concomitant]
     Dosage: 150 MG, UNK
     Route: 048
     Dates: start: 20070618
  6. METFORMIN [Concomitant]
     Dosage: 850 MG, UNK
     Route: 048
     Dates: start: 20070618

REACTIONS (7)
  - Cholelithiasis [None]
  - Injury [None]
  - Cholecystitis chronic [None]
  - Pain [None]
  - Emotional distress [None]
  - Anxiety [None]
  - Psychological trauma [None]
